FAERS Safety Report 9691415 (Version 1)
Quarter: 2013Q4

REPORT INFORMATION
  Report Type: Spontaneous
  Country: US (occurrence: US)
  Receive Date: 20131115
  Receipt Date: 20131115
  Transmission Date: 20140711
  Serious: Yes (Hospitalization)
  Sender: FDA-Public Use
  Company Number: PHEH2013US023894

PATIENT
  Sex: Female

DRUGS (4)
  1. RITALINA [Suspect]
     Dosage: UNK UKN, UNK
  2. FOCALIN [Concomitant]
     Dosage: 30 MG, QD
  3. VITAMIN C [Concomitant]
     Dosage: UNK UKN, UNK
  4. WELLBUTRIN SR [Concomitant]
     Dosage: UNK UKN, UNK

REACTIONS (2)
  - Systemic lupus erythematosus [Unknown]
  - Feeling abnormal [Unknown]
